FAERS Safety Report 21250485 (Version 1)
Quarter: 2022Q3

REPORT INFORMATION
  Report Type: Spontaneous
  Country: US (occurrence: US)
  Receive Date: 20220824
  Receipt Date: 20220824
  Transmission Date: 20221027
  Serious: Yes (Other)
  Sender: FDA-Public Use
  Company Number: US-BoehringerIngelheim-2022-BI-188688

PATIENT
  Age: 66 Year
  Sex: Male

DRUGS (1)
  1. JARDIANCE [Suspect]
     Active Substance: EMPAGLIFLOZIN
     Indication: Type 2 diabetes mellitus
     Dates: start: 2021, end: 202207

REACTIONS (5)
  - Suicidal ideation [Recovered/Resolved]
  - Dysuria [Recovered/Resolved]
  - Phimosis [Recovered/Resolved]
  - Penis disorder [Recovered/Resolved]
  - Penis injury [Recovered/Resolved]
